FAERS Safety Report 7445811-3 (Version None)
Quarter: 2011Q2

REPORT INFORMATION
  Report Type: 
  Country: None (occurrence: None)
  Receive Date: 20110429
  Receipt Date: 20110422
  Transmission Date: 20111010
  Serious: Yes (Hospitalization, Other)
  Sender: FDA-Public Use
  Company Number: NL-MEDIMMUNE-MEDI-0013141

PATIENT
  Sex: Male
  Weight: 10.6 kg

DRUGS (1)
  1. SYNAGIS [Suspect]
     Route: 030
     Dates: start: 20101013, end: 20110330

REACTIONS (4)
  - ADVERSE EVENT [None]
  - GROWTH RETARDATION [None]
  - CARDIAC DISORDER [None]
  - VENTRICULAR SEPTAL DEFECT [None]
